FAERS Safety Report 8094620-3 (Version None)
Quarter: 2011Q4

REPORT INFORMATION
  Report Type: 
  Country: None (occurrence: None)
  Receive Date: 20111222
  Receipt Date: 20111028
  Transmission Date: 20120403
  Serious: Yes (Hospitalization)
  Sender: FDA-Public Use
  Company Number: UTC-010672

PATIENT
  Age: 75 Year
  Sex: Female
  Weight: 56.81 kg

DRUGS (5)
  1. PLAVIX [Concomitant]
  2. ASPIRIN [Concomitant]
  3. TYVASO [Suspect]
     Indication: COR PULMONALE CHRONIC
     Dosage: 72 MCG  (18 MCG, 4 IN 1 D), INHALATION
     Route: 055
     Dates: start: 20110211
  4. OXYGEN (OXYGEN) (UNKNOWN) [Concomitant]
  5. REVATIO (SILDENAFIL CITRATE) (UNKNOWN) [Concomitant]

REACTIONS (5)
  - DYSPNOEA [None]
  - WEIGHT DECREASED [None]
  - NEPHROPATHY [None]
  - DEHYDRATION [None]
  - DECREASED APPETITE [None]
